FAERS Safety Report 22085868 (Version 1)
Quarter: 2023Q1

REPORT INFORMATION
  Report Type: Spontaneous
  Country: US (occurrence: None)
  Receive Date: 20230310
  Receipt Date: 20230310
  Transmission Date: 20230418
  Serious: No
  Sender: FDA-Public Use
  Company Number: None

PATIENT
  Age: 54 Year
  Sex: Female
  Weight: 78.93 kg

DRUGS (8)
  1. LUNESTA [Suspect]
     Active Substance: ESZOPICLONE
     Indication: Insomnia
     Dosage: OTHER QUANTITY : 1 1/2 PILLS;?FREQUENCY : AT BEDTIME;?
     Route: 048
     Dates: start: 2008, end: 2023
  2. CELEXA [Concomitant]
     Active Substance: CITALOPRAM HYDROBROMIDE
  3. LITHIUM [Concomitant]
     Active Substance: LITHIUM
  4. SYNTHROID [Concomitant]
     Active Substance: LEVOTHYROXINE SODIUM
  5. TRAZODONE [Concomitant]
     Active Substance: TRAZODONE HYDROCHLORIDE
  6. Cytomil [Concomitant]
  7. LYSINE [Concomitant]
     Active Substance: LYSINE
  8. Probiotic Benadryl [Concomitant]

REACTIONS (7)
  - Dyskinesia [None]
  - Restlessness [None]
  - Mobility decreased [None]
  - Fatigue [None]
  - Loss of personal independence in daily activities [None]
  - Insomnia [None]
  - Disease recurrence [None]

NARRATIVE: CASE EVENT DATE: 20080414
